FAERS Safety Report 18921994 (Version 1)
Quarter: 2021Q1

REPORT INFORMATION
  Report Type: Spontaneous
  Country: US (occurrence: US)
  Receive Date: 20210220
  Receipt Date: 20210220
  Transmission Date: 20210420
  Serious: Yes (Hospitalization)
  Sender: FDA-Public Use
  Company Number: None

PATIENT
  Age: 53 Year
  Sex: Female
  Weight: 63.5 kg

DRUGS (2)
  1. ANASTRAZOLE [Concomitant]
     Active Substance: ANASTROZOLE
  2. ASPIRIN. [Suspect]
     Active Substance: ASPIRIN
     Dates: end: 20210127

REACTIONS (2)
  - Toxicity to various agents [None]
  - Blood ethanol increased [None]

NARRATIVE: CASE EVENT DATE: 20210128
